FAERS Safety Report 15368052 (Version 3)
Quarter: 2018Q3

REPORT INFORMATION
  Report Type: Report from Study
  Country: None (occurrence: US)
  Receive Date: 20180910
  Receipt Date: 20180918
  Transmission Date: 20181010
  Serious: Yes (Death, Hospitalization)
  Sender: FDA-Public Use
  Company Number: US-BAUSCH-BL-2018-024871

PATIENT
  Sex: Female

DRUGS (2)
  1. XIFAXAN [Suspect]
     Active Substance: RIFAXIMIN
     Indication: HAEMOCHROMATOSIS
     Dosage: STARTED SOMETIME IN 2017
     Route: 048
     Dates: start: 2017
  2. XIFAXAN [Suspect]
     Active Substance: RIFAXIMIN
     Indication: OFF LABEL USE

REACTIONS (5)
  - Ammonia increased [Unknown]
  - Diarrhoea [Unknown]
  - Haemochromatosis [Fatal]
  - Hepatic cirrhosis [Fatal]
  - Off label use [Not Recovered/Not Resolved]
